FAERS Safety Report 8248809 (Version 6)
Quarter: 2016Q2

REPORT INFORMATION
  Report Type: Report from Study
  Country: IN (occurrence: IN)
  Receive Date: 20111117
  Receipt Date: 20160601
  Transmission Date: 20160815
  Serious: Yes (Death, Other)
  Sender: FDA-Public Use
  Company Number: PHHY2011IN68276

PATIENT
  Sex: Female

DRUGS (2)
  1. GLIVEC [Suspect]
     Active Substance: IMATINIB MESYLATE
     Dosage: 800 MG, UNK
     Route: 065
  2. GLIVEC [Suspect]
     Active Substance: IMATINIB MESYLATE
     Indication: CHRONIC MYELOID LEUKAEMIA
     Dosage: 600 MG, UNK
     Route: 065
     Dates: start: 2001

REACTIONS (8)
  - Furuncle [Unknown]
  - Death [Fatal]
  - Visual impairment [Unknown]
  - Drug ineffective [Unknown]
  - Oral mucosal blistering [Unknown]
  - Weight increased [Unknown]
  - Retinal disorder [Unknown]
  - Eye disorder [Unknown]
